FAERS Safety Report 7675088-5 (Version None)
Quarter: 2011Q3

REPORT INFORMATION
  Report Type: 
  Country: None (occurrence: None)
  Receive Date: 20110810
  Receipt Date: 20110808
  Transmission Date: 20111222
  Serious: Yes (Hospitalization)
  Sender: FDA-Public Use
  Company Number: US-MERCK-1104USA02225

PATIENT
  Age: 57 Year
  Sex: Female

DRUGS (7)
  1. VITAMIN E [Concomitant]
     Route: 065
  2. VITAMINS (UNSPECIFIED) [Concomitant]
     Route: 065
  3. CALCIUM (UNSPECIFIED) [Concomitant]
     Route: 065
  4. OMEGA-3 MARINE TRIGLYCERIDES [Concomitant]
     Route: 065
  5. FOSAMAX [Suspect]
     Indication: OSTEOPOROSIS
     Route: 048
     Dates: start: 19970101, end: 20100101
  6. VITAMIN D (UNSPECIFIED) [Concomitant]
     Route: 065
  7. FOSAMAX [Suspect]
     Route: 065
     Dates: start: 19970101

REACTIONS (7)
  - PAIN IN EXTREMITY [None]
  - HORMONE LEVEL ABNORMAL [None]
  - FEMUR FRACTURE [None]
  - BLOOD CHOLESTEROL INCREASED [None]
  - INFECTION [None]
  - GINGIVAL DISORDER [None]
  - TOOTH DISORDER [None]
